APPROVED DRUG PRODUCT: GALANTAMINE HYDROBROMIDE
Active Ingredient: GALANTAMINE HYDROBROMIDE
Strength: EQ 4MG BASE
Dosage Form/Route: TABLET;ORAL
Application: A077585 | Product #001
Applicant: HERITAGE PHARMA LABS INC
Approved: Sep 15, 2009 | RLD: No | RS: No | Type: DISCN